FAERS Safety Report 8596795 (Version 2)
Quarter: 2013Q3

REPORT INFORMATION
  Report Type: Spontaneous
  Country: US (occurrence: US)
  Receive Date: 20120605
  Receipt Date: 20130925
  Transmission Date: 20140515
  Serious: Yes (Other)
  Sender: FDA-Public Use
  Company Number: US-ASTRAZENECA-2012SE35858

PATIENT
  Age: 53 Year
  Sex: Male

DRUGS (37)
  1. NEXIUM [Suspect]
     Indication: GASTROOESOPHAGEAL REFLUX DISEASE
     Dosage: TWICE PER DAY
     Route: 048
     Dates: start: 20070430
  2. NEXIUM [Suspect]
     Indication: OESOPHAGEAL DISORDER
     Dosage: TWICE PER DAY
     Route: 048
     Dates: start: 20070430
  3. NEXIUM [Suspect]
     Indication: GASTROOESOPHAGEAL REFLUX DISEASE
     Route: 048
     Dates: start: 20070430
  4. NEXIUM [Suspect]
     Indication: OESOPHAGEAL DISORDER
     Route: 048
     Dates: start: 20070430
  5. NEXIUM [Suspect]
     Indication: GASTROOESOPHAGEAL REFLUX DISEASE
     Dosage: 20 TO 40 MG
     Route: 048
     Dates: start: 20120215
  6. NEXIUM [Suspect]
     Indication: OESOPHAGEAL DISORDER
     Dosage: 20 TO 40 MG
     Route: 048
     Dates: start: 20120215
  7. NEXIUM [Suspect]
     Indication: GASTROOESOPHAGEAL REFLUX DISEASE
     Route: 048
     Dates: start: 20120215
  8. NEXIUM [Suspect]
     Indication: OESOPHAGEAL DISORDER
     Route: 048
     Dates: start: 20120215
  9. ZOLPIDEM/ ZOLPIDEM TARTRATE/ AMBIEN [Concomitant]
     Indication: SLEEP DISORDER
     Dates: start: 20110730
  10. CLONAZEPAM [Concomitant]
     Dates: start: 20110801
  11. PANTOPRAZOLE SOD [Concomitant]
     Dates: start: 20110801
  12. SINGULAIR [Concomitant]
     Dates: start: 20110808
  13. PREDNISONE [Concomitant]
     Dates: start: 20110815
  14. NITROGLYCERINE [Concomitant]
     Dosage: 0.4
     Dates: start: 20110829
  15. BUPROPION SR [Concomitant]
     Dosage: 150 M
     Dates: start: 20110916
  16. PROMETHAZINE [Concomitant]
     Dates: start: 20110928
  17. ATENOLOL [Concomitant]
     Indication: BLOOD PRESSURE
     Dates: start: 20110928
  18. FUROSEMIDE [Concomitant]
     Dates: start: 20110928
  19. SULPHAMETHOXAZOLE [Concomitant]
     Dates: start: 20111116
  20. AZITHROMYCIN [Concomitant]
     Dates: start: 20120109
  21. CLINDAMYCIN HCL [Concomitant]
     Dates: start: 20120228
  22. DICYCLOMINE [Concomitant]
     Dates: start: 20120331
  23. TRAMADOL HCL [Concomitant]
     Dates: start: 20120403
  24. GEMFIBROZIL [Concomitant]
     Dates: start: 20120410
  25. NITROSTAT [Concomitant]
     Dates: start: 20120720
  26. TUMS [Concomitant]
  27. ROLAIDS [Concomitant]
  28. PLAVIX [Concomitant]
     Indication: CARDIAC DISORDER
  29. ASPIRIN [Concomitant]
     Indication: CARDIAC DISORDER
  30. WELLBUTRIN [Concomitant]
  31. SYMBICORT [Concomitant]
     Indication: CHRONIC OBSTRUCTIVE PULMONARY DISEASE
  32. DICLOFENAC [Concomitant]
     Indication: PAIN
  33. CRESTOR [Concomitant]
     Indication: BLOOD CHOLESTEROL
  34. ENBREL [Concomitant]
     Indication: PSORIASIS
  35. CLARITIN [Concomitant]
     Indication: MULTIPLE ALLERGIES
  36. ANDROGEL [Concomitant]
     Indication: BLOOD TESTOSTERONE
  37. VICODIN [Concomitant]

REACTIONS (6)
  - Skin cancer [Unknown]
  - Osteoporosis [Unknown]
  - Hand fracture [Unknown]
  - Osteomalacia [Unknown]
  - Chronic obstructive pulmonary disease [Unknown]
  - Vitamin D deficiency [Unknown]
